FAERS Safety Report 9398378 (Version 1)
Quarter: 2013Q3

REPORT INFORMATION
  Report Type: Spontaneous
  Country: US (occurrence: US)
  Receive Date: 20130712
  Receipt Date: 20130712
  Transmission Date: 20140515
  Serious: No
  Sender: FDA-Public Use
  Company Number: US-GLAXOSMITHKLINE-A1011681A

PATIENT
  Age: 1 Year
  Sex: Male

DRUGS (6)
  1. FLOVENT [Suspect]
     Indication: ASTHMA
     Dosage: 2PUFF TWICE PER DAY
     Route: 055
     Dates: start: 201210, end: 201301
  2. ZANTAC [Concomitant]
  3. PREVACID [Concomitant]
  4. ZYRTEC [Concomitant]
  5. ALBUTEROL INHALER [Concomitant]
  6. ALBUTEROL NEBULIZER [Concomitant]

REACTIONS (1)
  - Drug administered to patient of inappropriate age [Unknown]
